FAERS Safety Report 7666873-4 (Version None)
Quarter: 2011Q3

REPORT INFORMATION
  Report Type: 
  Country: None (occurrence: None)
  Receive Date: 20110806
  Receipt Date: 20110718
  Transmission Date: 20111222
  Serious: No
  Sender: FDA-Public Use
  Company Number: US-ABBOTT-11P-163-0840150-00

PATIENT
  Sex: Male
  Weight: 95.34 kg

DRUGS (7)
  1. NIASPAN [Suspect]
     Indication: BLOOD TRIGLYCERIDES INCREASED
     Dates: start: 20110628
  2. LANTUS [Concomitant]
     Indication: DIABETES MELLITUS
  3. RAMIPRIL [Concomitant]
     Indication: HYPERTENSION
  4. GLYBURIDE [Concomitant]
     Indication: DIABETES MELLITUS
  5. PROPRANOLOL [Concomitant]
     Indication: HYPERTENSION
  6. METFORMIN HCL [Concomitant]
     Indication: DIABETES MELLITUS
  7. NAPROXEN SODIUM [Concomitant]
     Indication: PAIN

REACTIONS (1)
  - INSOMNIA [None]
